FAERS Safety Report 20623345 (Version 1)
Quarter: 2022Q1

REPORT INFORMATION
  Report Type: Spontaneous
  Country: US (occurrence: US)
  Receive Date: 20220322
  Receipt Date: 20220322
  Transmission Date: 20220424
  Serious: Yes (Hospitalization)
  Sender: FDA-Public Use
  Company Number: US-BAYER-2022A038509

PATIENT
  Age: 66 Year
  Sex: Female
  Weight: 57.596 kg

DRUGS (7)
  1. ADEMPAS [Suspect]
     Active Substance: RIOCIGUAT
     Indication: Product used for unknown indication
     Dosage: UNK
  2. ORENITRAM [Suspect]
     Active Substance: TREPROSTINIL
     Indication: Pulmonary arterial hypertension
     Dosage: UNK
     Dates: start: 20180412
  3. ORENITRAM [Suspect]
     Active Substance: TREPROSTINIL
     Indication: Pulmonary arterial hypertension
     Dosage: 5 MG
  4. ORENITRAM [Suspect]
     Active Substance: TREPROSTINIL
     Indication: Pulmonary arterial hypertension
     Dosage: 1 MG
  5. ORENITRAM [Suspect]
     Active Substance: TREPROSTINIL
     Indication: Pulmonary arterial hypertension
     Dosage: 9 MG, TID
  6. ORENITRAM [Suspect]
     Active Substance: TREPROSTINIL
     Indication: Pulmonary arterial hypertension
     Dosage: 7.5 MG, TID
  7. LETAIRIS [Concomitant]
     Active Substance: AMBRISENTAN
     Dosage: UNK

REACTIONS (12)
  - Colon cancer [None]
  - Colon cancer [None]
  - Colon cancer [None]
  - Diabetes mellitus [None]
  - Hyperglycaemia [None]
  - Delirium [None]
  - Speech disorder [Unknown]
  - Haemoglobin decreased [None]
  - Full blood count abnormal [None]
  - Pneumonia [None]
  - Hypotension [None]
  - Blood glucose increased [None]

NARRATIVE: CASE EVENT DATE: 20210101
